FAERS Safety Report 20388476 (Version 1)
Quarter: 2022Q1

REPORT INFORMATION
  Report Type: Report from Study
  Country: BR (occurrence: BR)
  Receive Date: 20220128
  Receipt Date: 20220128
  Transmission Date: 20220423
  Serious: Yes (Disabling, Other)
  Sender: FDA-Public Use
  Company Number: BR-ABBVIE-22K-020-4250410-00

PATIENT
  Sex: Female
  Weight: 47 kg

DRUGS (1)
  1. HUMIRA [Suspect]
     Active Substance: ADALIMUMAB
     Indication: Colitis ulcerative
     Route: 058
     Dates: end: 202107

REACTIONS (12)
  - Dysstasia [Unknown]
  - Nervous system disorder [Unknown]
  - Balance disorder [Unknown]
  - Liver disorder [Unknown]
  - Dizziness [Unknown]
  - Malaise [Unknown]
  - Feeling hot [Unknown]
  - Abdominal distension [Unknown]
  - Haematochezia [Unknown]
  - Anal infection [Unknown]
  - Paraesthesia [Unknown]
  - Abdominal pain [Not Recovered/Not Resolved]
